FAERS Safety Report 6866841-6 (Version None)
Quarter: 2010Q2

REPORT INFORMATION
  Report Type: 
  Country: None (occurrence: None)
  Receive Date: 20100528
  Receipt Date: 20100208
  Transmission Date: 20101027
  Serious: No
  Sender: FDA-Public Use
  Company Number: 006425

PATIENT
  Sex: Female
  Weight: 59.8 kg

DRUGS (4)
  1. LACOSAMIDE [Suspect]
     Indication: CONVULSION
     Dosage: (150 MG BID ORAL)
     Route: 048
     Dates: start: 20100203
  2. LYRICA [Concomitant]
  3. TOPAMAX [Concomitant]
  4. ASPIRIN [Concomitant]

REACTIONS (1)
  - MEMORY IMPAIRMENT [None]
